FAERS Safety Report 8514264-6 (Version None)
Quarter: 2012Q3

REPORT INFORMATION
  Report Type: 
  Country: None (occurrence: None)
  Receive Date: 20120717
  Receipt Date: 20120705
  Transmission Date: 20120928
  Serious: Yes (Other)
  Sender: FDA-Public Use
  Company Number: BR-PFIZER INC-2012169178

PATIENT
  Age: 41 Year
  Sex: Female
  Weight: 61 kg

DRUGS (2)
  1. PANTOPRAZOLE [Suspect]
     Indication: EROSIVE OESOPHAGITIS
     Dosage: 1 DOSAGE FORMS (IN THE MORNING)
     Route: 048
     Dates: start: 20120615
  2. PANTOPRAZOLE [Suspect]
     Indication: EROSIVE DUODENITIS

REACTIONS (3)
  - URINARY TRACT INFECTION [None]
  - CHROMATURIA [None]
  - POLLAKIURIA [None]
